FAERS Safety Report 4381654-5 (Version None)
Quarter: 2004Q2

REPORT INFORMATION
  Report Type: 
  Country: None (occurrence: None)
  Receive Date: 20040615
  Receipt Date: 20040604
  Transmission Date: 20050107
  Serious: Yes (Hospitalization)
  Sender: FDA-Public Use
  Company Number: 2004UW10261

PATIENT
  Age: 64 Year
  Sex: Female
  Weight: 72 kg

DRUGS (3)
  1. IRESSA [Suspect]
     Indication: INFECTION
     Dosage: 250 MG QD PO
     Route: 048
     Dates: start: 20040324, end: 20040526
  2. GEMZAR [Suspect]
     Indication: PANCREATIC CARCINOMA
     Dosage: 2110 MG WEEK IV
     Route: 042
     Dates: start: 20040324, end: 20040526
  3. GEMZAR [Suspect]
     Indication: PYREXIA
     Dosage: 2110 MG WEEK IV
     Route: 042
     Dates: start: 20040324, end: 20040526

REACTIONS (9)
  - ASTHENIA [None]
  - CHILLS [None]
  - HAEMOGLOBIN DECREASED [None]
  - HEADACHE [None]
  - INFECTION [None]
  - NAUSEA [None]
  - PYREXIA [None]
  - URINARY TRACT INFECTION [None]
  - WHITE BLOOD CELL COUNT DECREASED [None]
